FAERS Safety Report 11714401 (Version 2)
Quarter: 2015Q4

REPORT INFORMATION
  Report Type: Spontaneous
  Country: US (occurrence: US)
  Receive Date: 20151109
  Receipt Date: 20151118
  Transmission Date: 20160304
  Serious: Yes (Hospitalization)
  Sender: FDA-Public Use
  Company Number: US-009507513-1511USA000808

PATIENT
  Age: 48 Year
  Sex: Male

DRUGS (13)
  1. FENTANYL CITRATE. [Concomitant]
     Active Substance: FENTANYL CITRATE
  2. TETRACYCLINE [Concomitant]
     Active Substance: TETRACYCLINE
  3. CHLORPROMAZINE HYDROCHLORIDE. [Concomitant]
     Active Substance: CHLORPROMAZINE HYDROCHLORIDE
  4. ESOMEPRAZOLE [Suspect]
     Active Substance: ESOMEPRAZOLE
  5. DEXAMETHASONE. [Suspect]
     Active Substance: DEXAMETHASONE
     Route: 048
  6. VICODIN [Suspect]
     Active Substance: ACETAMINOPHEN\HYDROCODONE BITARTRATE
  7. CETUXIMAB [Suspect]
     Active Substance: CETUXIMAB
     Dosage: 250 MG/M2, UNKNOWN
     Route: 042
  8. DOCETAXEL. [Suspect]
     Active Substance: DOCETAXEL
     Dosage: 56 MG, QW
     Route: 042
  9. ENOXAPARIN SODIUM. [Suspect]
     Active Substance: ENOXAPARIN SODIUM
     Dosage: 1 DF, QD
     Route: 058
  10. LOPERAMIDE HYDROCHLORIDE. [Concomitant]
     Active Substance: LOPERAMIDE HYDROCHLORIDE
  11. POLYETHYLENE GLYCOL 3350. [Suspect]
     Active Substance: POLYETHYLENE GLYCOL 3350
     Indication: PRODUCT USED FOR UNKNOWN INDICATION
     Dosage: UNK
  12. LIPOAMIN [Concomitant]
  13. IRINOTECAN [Suspect]
     Active Substance: IRINOTECAN
     Dosage: 80 MG, QW
     Route: 042

REACTIONS (5)
  - Vomiting [Unknown]
  - Nausea [Unknown]
  - Hypotension [Unknown]
  - Diarrhoea [Unknown]
  - Dehydration [Unknown]
